FAERS Safety Report 9338415 (Version 1)
Quarter: 2013Q2

REPORT INFORMATION
  Report Type: Spontaneous
  Country: US (occurrence: US)
  Receive Date: 20130610
  Receipt Date: 20130610
  Transmission Date: 20140414
  Serious: Yes (Other)
  Sender: FDA-Public Use
  Company Number: US-ELI_LILLY_AND_COMPANY-US201305009874

PATIENT
  Age: 81 Year
  Sex: Male

DRUGS (20)
  1. HUMULIN REGULAR [Suspect]
     Indication: TYPE 2 DIABETES MELLITUS
     Dosage: UNK, UNKNOWN
     Dates: start: 201211
  2. HUMULIN REGULAR [Suspect]
     Dosage: UNK, OTHER
  3. METOPROLOL [Concomitant]
     Dosage: 50 MG, BID
  4. METFORMIN [Concomitant]
     Dosage: 1000 MG, BID
  5. LASIX [Concomitant]
     Dosage: 40 MG, QD
  6. VENLAFAXINE [Concomitant]
     Dosage: 225 MG, QD
  7. FERROUS SULFATE [Concomitant]
     Dosage: 325 MG, QD
  8. LOVAZA [Concomitant]
     Dosage: 1 DF, QD
  9. CENTRUM SILVER [Concomitant]
     Dosage: 1 DF, QD
  10. VITAMIN D [Concomitant]
     Dosage: 1 UNK, UNK
  11. FOLIC ACID [Concomitant]
     Dosage: 1 DF, QD
  12. SIMVASTATIN [Concomitant]
     Dosage: 10 MG, QD
  13. TRAZODONE [Concomitant]
     Dosage: 150 MG, QD
  14. DIOVAN [Concomitant]
     Dosage: 160 MG, PRN
  15. TERAZOSIN [Concomitant]
     Dosage: 5 MG, PRN
  16. ASPIRIN [Concomitant]
     Dosage: 81 MG, QD
  17. TYLENOL                                 /SCH/ [Concomitant]
     Dosage: 1 DF, BID
  18. OXYCODONE [Concomitant]
     Dosage: 5 MG, QD
  19. ADVAIR [Concomitant]
     Dosage: 1 DF, BID
  20. COMBIVENT [Concomitant]
     Dosage: UNK, PRN

REACTIONS (10)
  - Lung neoplasm malignant [Unknown]
  - Blood glucose fluctuation [Unknown]
  - Fatigue [Unknown]
  - Decreased appetite [Unknown]
  - Dehydration [Unknown]
  - Fall [Unknown]
  - Headache [Unknown]
  - Pain [Unknown]
  - Medication error [Unknown]
  - Drug dose omission [Unknown]
